FAERS Safety Report 4614883-3 (Version None)
Quarter: 2005Q1

REPORT INFORMATION
  Report Type: 
  Country: None (occurrence: None)
  Receive Date: 20050322
  Receipt Date: 20050317
  Transmission Date: 20050727
  Serious: Yes (Death)
  Sender: FDA-Public Use
  Company Number: PHHO2005MY04471

PATIENT

DRUGS (1)
  1. GLEEVEC [Suspect]

REACTIONS (1)
  - RENAL FAILURE [None]
